FAERS Safety Report 7498366-1 (Version None)
Quarter: 2011Q2

REPORT INFORMATION
  Report Type: 
  Country: None (occurrence: None)
  Receive Date: 20110524
  Receipt Date: 20110425
  Transmission Date: 20111010
  Serious: No
  Sender: FDA-Public Use
  Company Number: US-BAYER-2011-037451

PATIENT
  Age: 102 Year
  Sex: Female
  Weight: 63 kg

DRUGS (8)
  1. COMBIGAN [Concomitant]
     Dosage: UNK
  2. ALEVE (CAPLET) [Suspect]
     Indication: ANALGESIC THERAPY
     Dosage: DAILY DOSE 880 MG
     Route: 048
     Dates: end: 20110423
  3. CLONIDINE [Concomitant]
  4. AVAPRO [Concomitant]
     Dosage: UNK
  5. LORAZEPAM [Concomitant]
     Dosage: UNK
  6. SOTALOL HCL [Concomitant]
     Dosage: UNK
  7. XALATAN [Concomitant]
     Dosage: UNK
  8. HYDROCHLOROTHIAZIDE [Concomitant]
     Dosage: UNK

REACTIONS (1)
  - ORAL DISCOMFORT [None]
